FAERS Safety Report 19447659 (Version 1)
Quarter: 2021Q2

REPORT INFORMATION
  Report Type: Spontaneous
  Country: US (occurrence: US)
  Receive Date: 20210622
  Receipt Date: 20210622
  Transmission Date: 20210717
  Serious: No
  Sender: FDA-Public Use
  Company Number: US-THERAPEUTICSMD-2021TMD01206

PATIENT
  Age: 52 Year
  Sex: Female

DRUGS (6)
  1. IMVEXXY [Suspect]
     Active Substance: ESTRADIOL
     Indication: VULVOVAGINAL DRYNESS
     Dosage: 10 ?G, 1X/DAY
     Route: 067
     Dates: start: 20210308
  2. UNSPECIFIED VITAMINS [Concomitant]
     Active Substance: VITAMINS
  3. FLUOXETINE [Concomitant]
     Active Substance: FLUOXETINE HYDROCHLORIDE
  4. FISH OIL [Concomitant]
     Active Substance: FISH OIL
  5. IMVEXXY [Suspect]
     Active Substance: ESTRADIOL
     Indication: DYSPAREUNIA
  6. PHENTERMINE. [Concomitant]
     Active Substance: PHENTERMINE

REACTIONS (2)
  - Headache [Not Recovered/Not Resolved]
  - Fatigue [Not Recovered/Not Resolved]

NARRATIVE: CASE EVENT DATE: 202103
